FAERS Safety Report 9255520 (Version 1)
Quarter: 2013Q1

REPORT INFORMATION
  Report Type: Spontaneous
  Country: US (occurrence: None)
  Receive Date: 20121212
  Receipt Date: 20121212
  Transmission Date: 20140127
  Serious: No
  Sender: FDA-Public Use
  Company Number: 1208USA007672

PATIENT
  Age: 58 Year
  Sex: Female

DRUGS (7)
  1. VICTRELIS [Suspect]
     Route: 048
  2. RIBAVIRIN [Suspect]
  3. ASPIRIN (ASPIRIN) [Concomitant]
  4. VITAMIN D (UNSPECIFIED) (VITAMIN D(UNSPECIFIED)CAPSULE [Concomitant]
  5. CALCIUM (UNSPECIFIED)(CALCIUM(UNSPECIFIED)) TABLET, 500 MG [Concomitant]
  6. PROCRIT (EPOETIN ALFA) INJECTION [Concomitant]
  7. VITAMINS (UNSPECIFIED) (VITAMINS(UNSPECIFIED)) CAPSULE [Concomitant]

REACTIONS (5)
  - Nausea [None]
  - Dizziness [None]
  - Asthenia [None]
  - Fatigue [None]
  - Chills [None]
